FAERS Safety Report 6589975-2 (Version None)
Quarter: 2010Q1

REPORT INFORMATION
  Report Type: 
  Country: None (occurrence: None)
  Receive Date: 20100219
  Receipt Date: 20100208
  Transmission Date: 20100710
  Serious: Yes (Other)
  Sender: FDA-Public Use
  Company Number: PHEH2010US02453

PATIENT
  Age: 56 Year
  Sex: Female

DRUGS (3)
  1. GLEEVEC [Suspect]
     Indication: MASTOCYTOMA
     Dosage: 1/2 TAB/DAY INCREASED TO 4 TAB/DAY
     Route: 048
     Dates: start: 20091112
  2. RECLAST [Suspect]
     Dosage: UNK
     Dates: start: 20100129
  3. PROCRIT [Concomitant]

REACTIONS (2)
  - HAEMATOCHEZIA [None]
  - JOINT SWELLING [None]
